FAERS Safety Report 7046171-2 (Version None)
Quarter: 2010Q4

REPORT INFORMATION
  Report Type: 
  Country: None (occurrence: None)
  Receive Date: 20101014
  Receipt Date: 20101006
  Transmission Date: 20110411
  Serious: Yes (Other)
  Sender: FDA-Public Use
  Company Number: US-WYE-H16822510

PATIENT
  Age: 66 Year
  Sex: Female
  Weight: 92.16 kg

DRUGS (4)
  1. PRISTIQ [Suspect]
     Indication: HOT FLUSH
     Route: 048
     Dates: start: 20100717
  2. TIZANIDINE HCL [Concomitant]
     Indication: ARTHRITIS
     Dosage: UNKNOWN
  3. ACETYLSALICYLIC ACID [Concomitant]
     Dosage: UNKNOWN
  4. XANAX [Concomitant]
     Dosage: UNKNOWN

REACTIONS (3)
  - OROPHARYNGEAL PAIN [None]
  - PHARYNGEAL OEDEMA [None]
  - ULCER [None]
